FAERS Safety Report 10235516 (Version 1)
Quarter: 2014Q2

REPORT INFORMATION
  Report Type: Spontaneous
  Country: IT (occurrence: IT)
  Receive Date: 20140613
  Receipt Date: 20140613
  Transmission Date: 20141212
  Serious: Yes (Hospitalization)
  Sender: FDA-Public Use
  Company Number: IT-ACTAVIS-2014-12362

PATIENT
  Age: 43 Year
  Sex: Male

DRUGS (3)
  1. LORAZEPAM (UNKNOWN) [Suspect]
     Indication: INSOMNIA
     Dosage: 3 MG, DAILY
     Route: 048
     Dates: start: 20120427, end: 20120427
  2. ALPRAZOLAM (UNKNOWN) [Suspect]
     Indication: INSOMNIA
     Dosage: 2 MG, DAILY
     Route: 048
     Dates: start: 20120427, end: 20120427
  3. MINIAS [Suspect]
     Indication: INSOMNIA
     Dosage: 4 MG, DAILY
     Route: 048
     Dates: start: 20120427, end: 20120427

REACTIONS (1)
  - Drug dependence [Recovering/Resolving]
